FAERS Safety Report 20839119 (Version 1)
Quarter: 2022Q2

REPORT INFORMATION
  Report Type: Report from Study
  Country: US (occurrence: US)
  Receive Date: 20220517
  Receipt Date: 20220517
  Transmission Date: 20220721
  Serious: Yes (Hospitalization)
  Sender: FDA-Public Use
  Company Number: US-ABBVIE-22K-163-4396198-00

PATIENT
  Sex: Female

DRUGS (1)
  1. HUMIRA [Suspect]
     Active Substance: ADALIMUMAB
     Indication: Illness
     Route: 058

REACTIONS (4)
  - Ovarian mass [Unknown]
  - Arthralgia [Unknown]
  - Back pain [Unknown]
  - Rheumatoid arthritis [Unknown]
